FAERS Safety Report 19764058 (Version 3)
Quarter: 2022Q2

REPORT INFORMATION
  Report Type: Report from Study
  Country: KR (occurrence: KR)
  Receive Date: 20210830
  Receipt Date: 20220413
  Transmission Date: 20220720
  Serious: Yes (Hospitalization, Other)
  Sender: FDA-Public Use
  Company Number: KR-TAKEDA-2021TUS052487

PATIENT
  Age: 48 Year
  Sex: Female
  Weight: 49 kg

DRUGS (37)
  1. IXAZOMIB [Suspect]
     Active Substance: IXAZOMIB
     Indication: Plasma cell myeloma
     Dosage: 4 MILLIGRAM, QD
     Route: 048
     Dates: start: 20210721, end: 20210804
  2. DEXAMETHASONE [Suspect]
     Active Substance: DEXAMETHASONE
     Indication: Plasma cell myeloma
     Dosage: 40 MILLIGRAM, BID
     Route: 048
     Dates: start: 20210721, end: 20210811
  3. LENALIDOMIDE [Suspect]
     Active Substance: LENALIDOMIDE
     Indication: Plasma cell myeloma
     Dosage: 25 MILLIGRAM, QD
     Route: 048
     Dates: start: 20210721, end: 20210810
  4. TRAZODONE HYDROCHLORIDE [Concomitant]
     Active Substance: TRAZODONE HYDROCHLORIDE
     Dosage: 25 MILLIGRAM
     Route: 065
  5. ACYCLOVIR [Concomitant]
     Active Substance: ACYCLOVIR
     Dosage: 200 MILLIGRAM
     Route: 065
  6. ASPIRIN [Concomitant]
     Active Substance: ASPIRIN
     Dosage: 100 MILLIGRAM
     Route: 065
  7. CYTOTEC [Concomitant]
     Active Substance: MISOPROSTOL
     Dosage: 200 MICROGRAM
     Route: 065
  8. GANAKHAN [Concomitant]
     Dosage: 50 MILLIGRAM
     Route: 065
  9. DONGA ACETAMINOPHEN [Concomitant]
     Dosage: 20 MILLIGRAM
     Route: 065
  10. SULFAMETHOXAZOLE\TRIMETHOPRIM [Concomitant]
     Active Substance: SULFAMETHOXAZOLE\TRIMETHOPRIM
     Dosage: UNK
     Route: 065
  11. ZOLPIDEM TARTRATE [Concomitant]
     Active Substance: ZOLPIDEM TARTRATE
     Dosage: 10 MILLIGRAM
     Route: 065
  12. ALLOPURINOL [Concomitant]
     Active Substance: ALLOPURINOL
     Dosage: 300 MILLIGRAM
     Route: 065
  13. SK ALBUMIN [Concomitant]
     Dosage: 100 MILLILITER
     Route: 065
  14. ANAPROX [Concomitant]
     Active Substance: NAPROXEN SODIUM
     Dosage: 275 MILLIGRAM
     Route: 065
  15. AVELOX [Concomitant]
     Active Substance: MOXIFLOXACIN HYDROCHLORIDE
     Dosage: 400 MILLIGRAM
     Route: 065
  16. COUGH NOS [Concomitant]
     Active Substance: DEXTROMETHORPHAN HYDROBROMIDE OR DEXTROMETHORPHAN HYDROBROMIDE\DOXYLAMINE SUCCINATE OR DEXTROMETHORP
     Dosage: UNK
     Route: 065
  17. URSODIOL [Concomitant]
     Active Substance: URSODIOL
     Dosage: 200 MILLIGRAM
     Route: 065
  18. Godex [Concomitant]
     Dosage: UNK
     Route: 065
  19. ERDOSTEINE [Concomitant]
     Active Substance: ERDOSTEINE
     Dosage: UNK
     Route: 065
  20. ESOMEPRAZOLE [Concomitant]
     Active Substance: ESOMEPRAZOLE
     Dosage: 20 MILLIGRAM
     Route: 065
  21. GELMA [Concomitant]
     Dosage: UNK
     Route: 065
  22. K-CONTIN CONTINUS [Concomitant]
     Dosage: UNK
     Route: 065
  23. MEDILAC DS [Concomitant]
     Dosage: UNK
     Route: 065
  24. METHYLPREDNISOLONE [Concomitant]
     Active Substance: METHYLPREDNISOLONE
     Dosage: 4 MILLIGRAM
     Route: 065
  25. SHUMACTON [Concomitant]
     Dosage: 20 MILLILITER
     Route: 065
  26. TWOLION [Concomitant]
     Dosage: UNK
     Route: 065
  27. MOSAONE [Concomitant]
     Dosage: 5 MILLIGRAM
     Route: 065
  28. Tacenol 8hours er [Concomitant]
     Dosage: 650 MILLIGRAM
     Route: 065
  29. ACETPHEN PREMIX [Concomitant]
     Dosage: 100 MILLILITER
     Route: 065
  30. GRASIN [Concomitant]
     Dosage: UNK
     Route: 065
  31. Hepa-merz [Concomitant]
     Dosage: UNK
     Route: 065
  32. LASIX [Concomitant]
     Active Substance: FUROSEMIDE
     Dosage: UNK
     Route: 065
  33. METOCLOPRAMIDE HYDROCHLORIDE [Concomitant]
     Active Substance: METOCLOPRAMIDE HYDROCHLORIDE
     Dosage: 2 MILLILITER
     Route: 065
  34. MASI [Concomitant]
     Dosage: 20 MILLILITER
     Route: 065
  35. MAXIPIME [Concomitant]
     Active Substance: CEFEPIME HYDROCHLORIDE
     Dosage: 1 GRAM
     Route: 065
  36. PIPERACILLIN SODIUM\TAZOBACTAM SODIUM [Concomitant]
     Active Substance: PIPERACILLIN SODIUM\TAZOBACTAM SODIUM
     Dosage: 4.5 GRAM
     Route: 065
  37. TAPOCIN [Concomitant]
     Dosage: 400 MILLIGRAM
     Route: 065

REACTIONS (1)
  - Pneumonia [Recovered/Resolved]

NARRATIVE: CASE EVENT DATE: 20210807
